FAERS Safety Report 7223247-8 (Version None)
Quarter: 2011Q1

REPORT INFORMATION
  Report Type: 
  Country: None (occurrence: None)
  Receive Date: 20110112
  Receipt Date: 20100326
  Transmission Date: 20110831
  Serious: No
  Sender: FDA-Public Use
  Company Number: US-ALLERGAN-1003997US

PATIENT
  Age: 72 Year
  Sex: Female

DRUGS (5)
  1. NEURONTIN [Concomitant]
  2. FLAXSEED OIL [Concomitant]
  3. VITAMIN D [Concomitant]
  4. RESTASIS [Suspect]
     Indication: DRY EYE
     Dosage: 1 GTT, BID
     Route: 047
  5. CALCIUM [Concomitant]

REACTIONS (1)
  - EYE IRRITATION [None]
